FAERS Safety Report 25832143 (Version 1)
Quarter: 2025Q3

REPORT INFORMATION
  Report Type: Spontaneous
  Country: US (occurrence: US)
  Receive Date: 20250922
  Receipt Date: 20250922
  Transmission Date: 20251020
  Serious: Yes (Other)
  Sender: MYLAN
  Company Number: US-MYLANLABS-2025M1080162

PATIENT
  Age: 63 Year
  Sex: Female

DRUGS (12)
  1. PHENYTOIN [Suspect]
     Active Substance: PHENYTOIN
     Indication: Seizure
  2. PHENYTOIN [Suspect]
     Active Substance: PHENYTOIN
     Route: 065
  3. PHENYTOIN [Suspect]
     Active Substance: PHENYTOIN
     Route: 065
  4. PHENYTOIN [Suspect]
     Active Substance: PHENYTOIN
  5. ACARBOSE [Suspect]
     Active Substance: ACARBOSE
     Indication: Postprandial hypoglycaemia
  6. ACARBOSE [Suspect]
     Active Substance: ACARBOSE
     Route: 065
  7. ACARBOSE [Suspect]
     Active Substance: ACARBOSE
     Route: 065
  8. ACARBOSE [Suspect]
     Active Substance: ACARBOSE
  9. DIAZOXIDE [Suspect]
     Active Substance: DIAZOXIDE
     Indication: Postprandial hypoglycaemia
  10. DIAZOXIDE [Suspect]
     Active Substance: DIAZOXIDE
     Route: 065
  11. DIAZOXIDE [Suspect]
     Active Substance: DIAZOXIDE
     Route: 065
  12. DIAZOXIDE [Suspect]
     Active Substance: DIAZOXIDE

REACTIONS (1)
  - Drug ineffective [Unknown]
